FAERS Safety Report 17983497 (Version 1)
Quarter: 2020Q3

REPORT INFORMATION
  Report Type: Spontaneous
  Country: US (occurrence: US)
  Receive Date: 20200705
  Receipt Date: 20200705
  Transmission Date: 20201103
  Serious: Yes (Other)
  Sender: FDA-Public Use
  Company Number: None

PATIENT
  Age: 70 Year
  Sex: Female

DRUGS (8)
  1. REFRESH OPTIVE [Suspect]
     Active Substance: CARBOXYMETHYLCELLULOSE SODIUM\GLYCERIN
  2. VITAMIN A [Concomitant]
     Active Substance: VITAMIN A
  3. BILBERRY [Concomitant]
     Active Substance: BILBERRY
  4. REFRESH TEARS [Suspect]
     Active Substance: CARBOXYMETHYLCELLULOSE SODIUM
     Indication: DRY EYE
     Route: 047
  5. VITAMIN C [Concomitant]
     Active Substance: ASCORBIC ACID
  6. VITAMIN B [Concomitant]
     Active Substance: VITAMIN B
  7. LUTEIN [Concomitant]
     Active Substance: LUTEIN
  8. VITAMIN E [Concomitant]
     Active Substance: .ALPHA.-TOCOPHEROL

REACTIONS (3)
  - Reaction to preservatives [None]
  - Product formulation issue [None]
  - Eye pain [None]

NARRATIVE: CASE EVENT DATE: 20200501
